FAERS Safety Report 6201837-9 (Version None)
Quarter: 2009Q2

REPORT INFORMATION
  Report Type: 
  Country: None (occurrence: None)
  Receive Date: 20090520
  Receipt Date: 20090408
  Transmission Date: 20091009
  Serious: Yes (Hospitalization)
  Sender: FDA-Public Use
  Company Number: 265212

PATIENT
  Age: 60 Year
  Sex: Male

DRUGS (5)
  1. CYTARABINE [Suspect]
     Indication: ACUTE MYELOID LEUKAEMIA
     Dosage: 5300 MG, TWICE DAILY ON DAYS 1, 3, 5 AND 7 ONLY)
     Route: 042
     Dates: start: 20071025, end: 20071101
  2. ZAVEDOS [Suspect]
     Indication: ACUTE MYELOID LEUKAEMIA
     Dosage: 15 MG, INTRAENOUS
     Route: 042
     Dates: start: 20071025, end: 20071027
  3. ETOPOSIDE [Suspect]
     Indication: ACUTE MYELOID LEUKAEMIA
     Dosage: 130 MG, INTRAVENOUS
     Route: 042
     Dates: start: 20071025, end: 20071031
  4. PEGFILGRASTIM [Suspect]
     Indication: WHITE BLOOD CELL DISORDER
     Dosage: 6 MG
     Dates: start: 20071102, end: 20071102
  5. VORICONAZOLE [Concomitant]

REACTIONS (7)
  - CYTOMEGALOVIRUS INFECTION [None]
  - DISEASE PROGRESSION [None]
  - DISEASE RECURRENCE [None]
  - EMPYEMA [None]
  - FEBRILE NEUTROPENIA [None]
  - FUNGAL INFECTION [None]
  - PLEURISY [None]
